FAERS Safety Report 13243049 (Version 1)
Quarter: 2017Q1

REPORT INFORMATION
  Report Type: Spontaneous
  Country: FI (occurrence: FI)
  Receive Date: 20170217
  Receipt Date: 20170217
  Transmission Date: 20170428
  Serious: Yes (Other)
  Sender: FDA-Public Use
  Company Number: FI-ABBVIE-17P-055-1874099-00

PATIENT

DRUGS (1)
  1. HUMIRA [Suspect]
     Active Substance: ADALIMUMAB
     Indication: PRODUCT USED FOR UNKNOWN INDICATION
     Route: 058

REACTIONS (1)
  - Progressive multifocal leukoencephalopathy [Unknown]
